FAERS Safety Report 12905511 (Version 6)
Quarter: 2017Q1

REPORT INFORMATION
  Report Type: Spontaneous
  Country: US (occurrence: US)
  Receive Date: 20161103
  Receipt Date: 20170311
  Transmission Date: 20170428
  Serious: No
  Sender: FDA-Public Use
  Company Number: PHEH2016US028640

PATIENT
  Sex: Female
  Weight: 54.43 kg

DRUGS (3)
  1. ZOFRAN [Suspect]
     Active Substance: ONDANSETRON HYDROCHLORIDE
     Indication: VOMITING IN PREGNANCY
     Dosage: 2 MG PER ML, BID
     Route: 042
     Dates: start: 201304, end: 201304
  2. ZOFRAN [Suspect]
     Active Substance: ONDANSETRON HYDROCHLORIDE
     Dosage: 2 MG PER ML, BID
     Route: 042
     Dates: start: 20130505, end: 20130508
  3. ZOFRAN [Suspect]
     Active Substance: ONDANSETRON HYDROCHLORIDE
     Indication: VOMITING IN PREGNANCY
     Dosage: 8 MG, TID
     Route: 048
     Dates: start: 20130507

REACTIONS (12)
  - Product use issue [Unknown]
  - Injury [Unknown]
  - Asthenia [Unknown]
  - Chest pain [Unknown]
  - Heart rate irregular [Unknown]
  - Dizziness [Unknown]
  - Chest discomfort [Unknown]
  - Dyspnoea [Unknown]
  - Blood pressure increased [Unknown]
  - Stress [Unknown]
  - Anxiety [Unknown]
  - Maternal exposure during pregnancy [Unknown]
